FAERS Safety Report 7591399-6 (Version None)
Quarter: 2011Q3

REPORT INFORMATION
  Report Type: 
  Country: None (occurrence: None)
  Receive Date: 20110706
  Receipt Date: 20110629
  Transmission Date: 20111222
  Serious: Yes (Hospitalization, Other)
  Sender: FDA-Public Use
  Company Number: US-AMGEN-USASP2011033482

PATIENT
  Sex: Female

DRUGS (1)
  1. ENBREL [Suspect]
     Indication: RHEUMATOID ARTHRITIS
     Dosage: 25 MG, 2 TIMES/WK
     Dates: start: 20000101, end: 20060101

REACTIONS (4)
  - BONE DISORDER [None]
  - OSTEOMYELITIS [None]
  - SPINAL FUSION SURGERY [None]
  - DEVICE RELATED INFECTION [None]
